FAERS Safety Report 5745379-3 (Version None)
Quarter: 2008Q2

REPORT INFORMATION
  Report Type: 
  Country: None (occurrence: None)
  Receive Date: 20080521
  Receipt Date: 20080516
  Transmission Date: 20081010
  Serious: Yes (Hospitalization)
  Sender: FDA-Public Use
  Company Number: CH-JNJFOC-20080304365

PATIENT
  Sex: Female
  Weight: 40 kg

DRUGS (5)
  1. RISPERDAL [Suspect]
     Indication: PSYCHOTIC DISORDER
     Route: 048
  2. LEVEMIR [Suspect]
     Indication: TYPE 1 DIABETES MELLITUS
     Route: 058
  3. HUMALOG [Suspect]
     Indication: TYPE 1 DIABETES MELLITUS
     Route: 058
  4. CALCIMAGON D3 [Concomitant]
     Indication: OSTEOPOROSIS
     Dosage: 1-0-1
     Route: 048
  5. NEXIUM [Concomitant]
     Indication: OSTEOPOROSIS
     Route: 048

REACTIONS (5)
  - ANXIETY [None]
  - CONFUSIONAL STATE [None]
  - FATIGUE [None]
  - HALLUCINATION [None]
  - HYPOGLYCAEMIA [None]
